FAERS Safety Report 7178842-1 (Version None)
Quarter: 2010Q4

REPORT INFORMATION
  Report Type: 
  Country: None (occurrence: None)
  Receive Date: 20101217
  Receipt Date: 20101217
  Transmission Date: 20110411
  Serious: No
  Sender: FDA-Public Use
  Company Number: None

PATIENT
  Sex: Male
  Weight: 87.3174 kg

DRUGS (2)
  1. LISINOPRIL [Suspect]
     Indication: HYPERTENSION
     Dosage: 40MG DAILY BY MOUTH  (ZESTRIL 2/14/2000 TO 3/18/2009)  (LISINOPRIL 3/18/2009 - PRESENT)
     Route: 048
     Dates: start: 20000214, end: 20090318
  2. LISINOPRIL [Suspect]
     Indication: HYPERTENSION
     Dosage: 40MG DAILY BY MOUTH  (ZESTRIL 2/14/2000 TO 3/18/2009)  (LISINOPRIL 3/18/2009 - PRESENT)
     Route: 048
     Dates: start: 20090318

REACTIONS (1)
  - COUGH [None]
